FAERS Safety Report 23453046 (Version 2)
Quarter: 2024Q3

REPORT INFORMATION
  Report Type: Spontaneous
  Country: US (occurrence: US)
  Receive Date: 20240129
  Receipt Date: 20240927
  Transmission Date: 20241016
  Serious: Yes (Other)
  Sender: RANBAXY
  Company Number: US-SUN PHARMACEUTICAL INDUSTRIES LTD-2024R1-428761

PATIENT
  Age: 9 Month
  Sex: Male

DRUGS (2)
  1. ACETAZOLAMIDE [Suspect]
     Active Substance: ACETAZOLAMIDE
     Indication: Ataxia
     Dosage: 5 MILLIGRAM/KILOGRAM, QD
     Route: 065
  2. ACETAZOLAMIDE [Suspect]
     Active Substance: ACETAZOLAMIDE
     Dosage: 15 MILLIGRAM/KILOGRAM, QD
     Route: 065

REACTIONS (2)
  - Therapeutic response decreased [Unknown]
  - Metabolic acidosis [Unknown]
